FAERS Safety Report 15371108 (Version 1)
Quarter: 2018Q3

REPORT INFORMATION
  Report Type: Report from Study
  Country: BR (occurrence: BR)
  Receive Date: 20180911
  Receipt Date: 20180911
  Transmission Date: 20181010
  Serious: Yes (Death)
  Sender: FDA-Public Use
  Company Number: PHHY2018BR060768

PATIENT
  Age: 44 Year
  Sex: Male
  Weight: 55 kg

DRUGS (2)
  1. VOTRIENT [Suspect]
     Active Substance: PAZOPANIB HYDROCHLORIDE
     Indication: METASTATIC RENAL CELL CARCINOMA
     Dosage: 800 MG, QD
     Route: 048
     Dates: start: 201805, end: 20180706
  2. VOTRIENT [Suspect]
     Active Substance: PAZOPANIB HYDROCHLORIDE
     Dosage: 800 MG, QD
     Route: 048
     Dates: start: 20180628

REACTIONS (3)
  - Multiple organ dysfunction syndrome [Fatal]
  - Weight decreased [Recovering/Resolving]
  - Eating disorder [Recovering/Resolving]

NARRATIVE: CASE EVENT DATE: 201808
